FAERS Safety Report 5138654-7 (Version None)
Quarter: 2006Q4

REPORT INFORMATION
  Report Type: 
  Country: None (occurrence: None)
  Receive Date: 20061026
  Receipt Date: 20061026
  Transmission Date: 20070319
  Serious: Yes (Hospitalization)
  Sender: FDA-Public Use
  Company Number: None

PATIENT
  Age: 81 Year
  Sex: Female
  Weight: 73 kg

DRUGS (8)
  1. FENTANYL TRANSDERMAL SYSTEM [Suspect]
     Indication: NEPHROLITHIASIS
     Dosage: 75 MCG EVERY 72 HOURS TOP
     Route: 061
  2. FENTANYL TRANSDERMAL SYSTEM [Suspect]
     Indication: PAIN
     Dosage: 75 MCG EVERY 72 HOURS TOP
     Route: 061
  3. PERCOCET [Suspect]
     Indication: NEPHROLITHIASIS
     Dosage: 5 MG 1 TO 2 Q4-6H PRN PO
     Route: 048
  4. PERCOCET [Suspect]
     Indication: PAIN
     Dosage: 5 MG 1 TO 2 Q4-6H PRN PO
     Route: 048
  5. LISINOPRIL [Concomitant]
  6. AMITRIPTYLINE HCL [Concomitant]
  7. VERAPAMIL EXTENDED-RELEASE [Concomitant]
  8. LASIX [Concomitant]

REACTIONS (9)
  - ABDOMINAL DISTENSION [None]
  - ABDOMINAL PAIN [None]
  - ANOREXIA [None]
  - CONSTIPATION [None]
  - GASTROINTESTINAL MOTILITY DISORDER [None]
  - HYPOXIA [None]
  - IMMOBILE [None]
  - PAIN [None]
  - WEIGHT DECREASED [None]
